FAERS Safety Report 7148467-2 (Version None)
Quarter: 2010Q4

REPORT INFORMATION
  Report Type: 
  Country: None (occurrence: None)
  Receive Date: 20101209
  Receipt Date: 20101127
  Transmission Date: 20110411
  Serious: Yes (Hospitalization, Other)
  Sender: FDA-Public Use
  Company Number: PHHY2010BR81074

PATIENT
  Sex: Female

DRUGS (2)
  1. EXELON [Suspect]
     Dosage: 18MG/10CM2, UNK
     Route: 062
  2. EXELON [Suspect]
     Dosage: 9MG/5CM2, UNK

REACTIONS (5)
  - BEDRIDDEN [None]
  - ERYTHEMA [None]
  - HYPERSENSITIVITY [None]
  - MENTAL DISORDER [None]
  - SCRATCH [None]
